FAERS Safety Report 17459692 (Version 1)
Quarter: 2020Q1

REPORT INFORMATION
  Report Type: Spontaneous
  Country: US (occurrence: US)
  Receive Date: 20200225
  Receipt Date: 20200225
  Transmission Date: 20200409
  Serious: Yes (Hospitalization)
  Sender: FDA-Public Use
  Company Number: US-ROCHE-2425205

PATIENT
  Age: 51 Year
  Sex: Male

DRUGS (22)
  1. SULFAMETHOXAZOLE/TRIMETHOPRIM [Concomitant]
     Active Substance: SULFAMETHOXAZOLE\TRIMETHOPRIM
     Dosage: TRIMETHOPRIM 160 MG-SULFAMETHOXAZOLE 800 MG
     Route: 065
  2. INDINAVIR [Suspect]
     Active Substance: INDINAVIR
     Indication: CACHEXIA
     Route: 065
  3. RIFABUTIN. [Concomitant]
     Active Substance: RIFABUTIN
     Route: 065
  4. GRANULOCYTE COLONY STIMULATING FACTOR [Concomitant]
     Active Substance: GRANULOCYTE COLONY-STIMULATING FACTOR NOS
     Route: 058
  5. NPH [ISOPHANE INSULIN] [Concomitant]
     Active Substance: INSULIN NOS
     Dosage: 36 U EVERY MORNING AND 18 U EVERY EVENING
     Route: 065
  6. NPH [ISOPHANE INSULIN] [Concomitant]
     Active Substance: INSULIN NOS
     Dosage: 42 U IN THE MORNING AND 22 U IN THE EVENING.
     Route: 065
  7. DIDANOSINE. [Concomitant]
     Active Substance: DIDANOSINE
  8. LAMIVUDINE. [Concomitant]
     Active Substance: LAMIVUDINE
     Route: 065
  9. OXANDROLONE. [Suspect]
     Active Substance: OXANDROLONE
     Indication: CACHEXIA
     Route: 065
  10. TESTOSTERONE. [Concomitant]
     Active Substance: TESTOSTERONE
     Route: 030
  11. FLUCONAZOLE. [Concomitant]
     Active Substance: FLUCONAZOLE
     Route: 065
  12. NPH [ISOPHANE INSULIN] [Concomitant]
     Active Substance: INSULIN NOS
     Dosage: 38 U IN THE MORNING AND 20 U IN THE EVENING.
     Route: 065
  13. ZIDOVUDINE. [Concomitant]
     Active Substance: ZIDOVUDINE
     Route: 065
  14. OXANDROLONE. [Suspect]
     Active Substance: OXANDROLONE
     Route: 065
  15. NPH [ISOPHANE INSULIN] [Concomitant]
     Active Substance: INSULIN NOS
     Dosage: 42 U IN THE MORNING AND 24 U IN THE EVENING.
     Route: 065
  16. ETHAMBUTOL [Concomitant]
     Active Substance: ETHAMBUTOL HYDROCHLORIDE
     Route: 065
  17. AMITRIPTYLINE [Concomitant]
     Active Substance: AMITRIPTYLINE
     Dosage: 25 MG AT BEDTIME
     Route: 065
  18. SOMATROPIN. [Suspect]
     Active Substance: SOMATROPIN
     Indication: CACHEXIA
     Route: 058
  19. CLARITHROMYCIN. [Concomitant]
     Active Substance: CLARITHROMYCIN
     Route: 065
  20. NPH [ISOPHANE INSULIN] [Concomitant]
     Active Substance: INSULIN NOS
     Dosage: ONLY 34 U OF NPH/DAY
     Route: 065
  21. NYSTATIN. [Concomitant]
     Active Substance: NYSTATIN
     Dosage: 100,000 U/ML 5 ML SWISH AND SWALLOW 4 TIMES/DAY FOR ORAL THRUSH
     Route: 048
  22. OXYMETHOLONE [Concomitant]
     Active Substance: OXYMETHOLONE
     Route: 065

REACTIONS (1)
  - Diabetes mellitus [Recovering/Resolving]
